FAERS Safety Report 6493911-7 (Version None)
Quarter: 2009Q4

REPORT INFORMATION
  Report Type: 
  Country: None (occurrence: None)
  Receive Date: 20091214
  Receipt Date: 20081121
  Transmission Date: 20100525
  Serious: No
  Sender: FDA-Public Use
  Company Number: US-BRISTOL-MYERS SQUIBB COMPANY-14416408

PATIENT
  Age: 46 Year
  Sex: Female
  Weight: 76 kg

DRUGS (5)
  1. ABILIFY [Suspect]
     Indication: DEPRESSION
     Dosage: 1ST 6DAYS TAKEN AS 1/2 TABS NEXT 5DAYS AS FULL TABS.
  2. ABILIFY [Suspect]
     Indication: POST-TRAUMATIC STRESS DISORDER
     Dosage: 1ST 6DAYS TAKEN AS 1/2 TABS NEXT 5DAYS AS FULL TABS.
  3. CYMBALTA [Concomitant]
  4. SYNTHROID [Concomitant]
  5. LORAZEPAM [Concomitant]

REACTIONS (5)
  - AGITATION [None]
  - CHILLS [None]
  - NERVOUSNESS [None]
  - RESTLESSNESS [None]
  - TREMOR [None]
